FAERS Safety Report 16580588 (Version 1)
Quarter: 2019Q3

REPORT INFORMATION
  Report Type: Spontaneous
  Country: US (occurrence: US)
  Receive Date: 20190716
  Receipt Date: 20190716
  Transmission Date: 20191004
  Serious: Yes (Other)
  Sender: FDA-Public Use
  Company Number: US-TEVA-2019-US-1078320

PATIENT

DRUGS (1)
  1. REVIA [Suspect]
     Active Substance: NALTREXONE HYDROCHLORIDE
     Route: 065

REACTIONS (1)
  - Seizure [Unknown]
